FAERS Safety Report 25310116 (Version 1)
Quarter: 2025Q2

REPORT INFORMATION
  Report Type: Spontaneous
  Country: ES (occurrence: ES)
  Receive Date: 20250514
  Receipt Date: 20250514
  Transmission Date: 20250717
  Serious: Yes (Hospitalization)
  Sender: TEVA
  Company Number: None

PATIENT
  Age: 61 Year
  Sex: Male

DRUGS (1)
  1. ATORVASTATIN [Suspect]
     Active Substance: ATORVASTATIN
     Indication: Cerebrovascular accident
     Dosage: ATORVASTATIN (7400A)
     Route: 048
     Dates: start: 20231019, end: 20241204

REACTIONS (1)
  - Necrotising myositis [Recovered/Resolved]

NARRATIVE: CASE EVENT DATE: 20240201
